FAERS Safety Report 11782561 (Version 3)
Quarter: 2016Q1

REPORT INFORMATION
  Report Type: Spontaneous
  Country: JP (occurrence: JP)
  Receive Date: 20151127
  Receipt Date: 20160118
  Transmission Date: 20160525
  Serious: Yes (Hospitalization)
  Sender: FDA-Public Use
  Company Number: JP-ORION CORPORATION ORION PHARMA-ENT 2015-1036

PATIENT
  Age: 74 Year
  Sex: Female

DRUGS (13)
  1. NEODOPASTON [Concomitant]
     Active Substance: CARBIDOPA\LEVODOPA
     Dosage: 2.5 TABLETS IN THE MORNING, 2.5 TABLETS IN THE AFTERNOON, 2.5 TABLETS AT 1600 HOURS, 2 TABLETS IN EA
     Route: 048
  2. BI SIFROL [Concomitant]
     Active Substance: PRAMIPEXOLE
     Route: 048
  3. DOPS [Concomitant]
     Active Substance: DROXIDOPA
     Route: 065
  4. AMANTADINE [Suspect]
     Active Substance: AMANTADINE
     Indication: PARKINSON^S DISEASE
     Route: 048
  5. AMANTADINE [Suspect]
     Active Substance: AMANTADINE
     Route: 048
  6. NEODOPASTON [Concomitant]
     Active Substance: CARBIDOPA\LEVODOPA
     Dosage: 1.5 TABLETS, 1.5 TABLETS, 2 TABLETS AND 2 TABLETS
     Route: 048
  7. ARICEPT [Concomitant]
     Active Substance: DONEPEZIL HYDROCHLORIDE
     Route: 048
  8. FP-OD [Concomitant]
     Active Substance: SELEGILINE HYDROCHLORIDE
     Route: 048
  9. COMTAN [Suspect]
     Active Substance: ENTACAPONE
     Route: 048
     Dates: start: 20130910, end: 20150811
  10. NEODOPASTON [Concomitant]
     Active Substance: CARBIDOPA\LEVODOPA
     Dosage: 500 MG IN 3 DIVIDED DOSES
     Route: 048
  11. NEUPRO [Concomitant]
     Active Substance: ROTIGOTINE
     Route: 065
  12. COMTAN [Suspect]
     Active Substance: ENTACAPONE
     Indication: PARKINSON^S DISEASE
     Route: 048
  13. AMANTADINE [Suspect]
     Active Substance: AMANTADINE
     Dosage: DOSE REDUCED
     Route: 048

REACTIONS (2)
  - Parkinson^s disease [Unknown]
  - Hallucinations, mixed [Unknown]
